FAERS Safety Report 4342274-1 (Version None)
Quarter: 2004Q2

REPORT INFORMATION
  Report Type: 
  Country: None (occurrence: None)
  Receive Date: 20040415
  Receipt Date: 20040402
  Transmission Date: 20050107
  Serious: Yes (Hospitalization)
  Sender: FDA-Public Use
  Company Number: ZONI001379

PATIENT
  Age: 25 Year
  Sex: Male

DRUGS (2)
  1. ZONEGRAN [Suspect]
     Indication: CONVULSION
     Dosage: 300 MG DAILY ORAL
     Route: 048
     Dates: start: 20040219
  2. TRILEPTAL [Concomitant]

REACTIONS (3)
  - CONVULSION [None]
  - HYPERPYREXIA [None]
  - PNEUMONIA ASPIRATION [None]
